FAERS Safety Report 4964835-9 (Version None)
Quarter: 2006Q1

REPORT INFORMATION
  Report Type: 
  Country: None (occurrence: None)
  Receive Date: 20060331
  Receipt Date: 20060313
  Transmission Date: 20060701
  Serious: Yes (Hospitalization, Disabling)
  Sender: FDA-Public Use
  Company Number: 376876

PATIENT
  Age: 17 Year
  Sex: Male
  Weight: 128.8 kg

DRUGS (1)
  1. ACCUTANE [Suspect]
     Indication: ACNE
     Dosage: UNK
     Route: 065
     Dates: start: 19850615

REACTIONS (52)
  - ANAEMIA [None]
  - ANAL FISSURE [None]
  - ANXIETY [None]
  - APPENDICITIS [None]
  - ARTHRALGIA [None]
  - ASTHENIA [None]
  - ATRIOVENTRICULAR BLOCK FIRST DEGREE [None]
  - BACK PAIN [None]
  - BARRETT'S OESOPHAGUS [None]
  - BLOOD CHOLESTEROL INCREASED [None]
  - CELLULITIS [None]
  - CHEST PAIN [None]
  - CHOLECYSTITIS [None]
  - CHOLELITHIASIS [None]
  - COLITIS [None]
  - COLITIS ULCERATIVE [None]
  - CONJUNCTIVITIS [None]
  - DEPRESSION [None]
  - DERMAL CYST [None]
  - DYSPEPSIA [None]
  - ERECTILE DYSFUNCTION [None]
  - FLATULENCE [None]
  - GASTROINTESTINAL DISORDER [None]
  - GASTROOESOPHAGEAL REFLUX DISEASE [None]
  - HAEMORRHOIDS [None]
  - HEADACHE [None]
  - HIGH DENSITY LIPOPROTEIN DECREASED [None]
  - HYPERSENSITIVITY [None]
  - INTESTINAL HAEMORRHAGE [None]
  - IRRITABLE BOWEL SYNDROME [None]
  - LABYRINTHITIS [None]
  - LIGAMENT INJURY [None]
  - MULTI-ORGAN DISORDER [None]
  - NASAL CONGESTION [None]
  - NASAL SEPTUM DEVIATION [None]
  - PALPITATIONS [None]
  - PANIC ATTACK [None]
  - PILONIDAL CYST [None]
  - PROCTALGIA [None]
  - PROCTITIS ULCERATIVE [None]
  - PROSTATE EXAMINATION ABNORMAL [None]
  - PROSTATITIS [None]
  - PRURITUS ANI [None]
  - RECTAL HAEMORRHAGE [None]
  - RHINITIS [None]
  - SINUS CONGESTION [None]
  - SINUSITIS [None]
  - SKIN IRRITATION [None]
  - SLEEP APNOEA SYNDROME [None]
  - TACHYCARDIA [None]
  - UPPER RESPIRATORY TRACT INFECTION [None]
  - VERTIGO [None]
